FAERS Safety Report 5311209-7 (Version None)
Quarter: 2007Q2

REPORT INFORMATION
  Report Type: 
  Country: None (occurrence: None)
  Receive Date: 20070430
  Receipt Date: 20070416
  Transmission Date: 20071010
  Serious: Yes (Other)
  Sender: FDA-Public Use
  Company Number: JP-ROCHE-431599

PATIENT
  Age: 8 Year
  Sex: Male
  Weight: 25 kg

DRUGS (4)
  1. TAMIFLU [Suspect]
     Dosage: FORM: DRY SYRUP.
     Route: 048
     Dates: start: 20051221, end: 20051221
  2. ASVERIN [Concomitant]
     Route: 048
     Dates: start: 20051221, end: 20051221
  3. BISOLVON [Concomitant]
     Route: 048
     Dates: start: 20051221, end: 20051221
  4. PERIACTIN [Concomitant]
     Route: 048
     Dates: start: 20051221, end: 20051221

REACTIONS (2)
  - PSYCHIATRIC SYMPTOM [None]
  - URINARY INCONTINENCE [None]
